FAERS Safety Report 8469893-5 (Version None)
Quarter: 2012Q2

REPORT INFORMATION
  Report Type: 
  Country: None (occurrence: None)
  Receive Date: 20120627
  Receipt Date: 20120620
  Transmission Date: 20120825
  Serious: Yes (Hospitalization)
  Sender: FDA-Public Use
  Company Number: FR-BRISTOL-MYERS SQUIBB COMPANY-15395528

PATIENT
  Age: 48 Year
  Sex: Male
  Weight: 63 kg

DRUGS (16)
  1. PREDNISOLONE [Suspect]
     Route: 048
     Dates: start: 20081101, end: 20101004
  2. ZIAGEN [Suspect]
     Route: 048
     Dates: start: 20081201
  3. ATENOLOL [Concomitant]
  4. LERCANIDIPINE [Concomitant]
  5. HYPERIUM [Concomitant]
  6. LASIX [Suspect]
  7. PANTOPRAZOLE SODIUM [Concomitant]
  8. FERROUS SULFATE TAB [Concomitant]
  9. EUPRESSYL [Concomitant]
  10. NORVIR [Suspect]
     Route: 048
     Dates: start: 20090901, end: 20101004
  11. EPIVIR [Suspect]
     Route: 048
     Dates: start: 20081201
  12. REYATAZ [Suspect]
     Route: 048
     Dates: start: 20090901, end: 20101004
  13. RAMIPRIL [Suspect]
  14. GAVISCON [Concomitant]
  15. RAMIPRIL [Concomitant]
  16. CRESTOR [Concomitant]

REACTIONS (2)
  - CRYSTAL URINE [None]
  - RENAL TUBULAR DISORDER [None]
